FAERS Safety Report 17883370 (Version 1)
Quarter: 2020Q2

REPORT INFORMATION
  Report Type: Spontaneous
  Country: CH (occurrence: CH)
  Receive Date: 20200611
  Receipt Date: 20200611
  Transmission Date: 20200714
  Serious: Yes (Hospitalization, Other)
  Sender: FDA-Public Use
  Company Number: CH-LUPIN PHARMACEUTICALS INC.-2020-02736

PATIENT
  Age: 52 Year
  Sex: Female

DRUGS (6)
  1. MOXIFLOXACIN HYDROCHLORIDE. [Suspect]
     Active Substance: MOXIFLOXACIN HYDROCHLORIDE
     Indication: ULCERATIVE KERATITIS
     Dosage: 5 MILLIGRAM PER MILLILITRE (ALTERNATING HALF-HOURLY AROUND THE CLOCK)
     Route: 047
  2. VORICONAZOLE. [Suspect]
     Active Substance: VORICONAZOLE
     Indication: HYPOPYON
  3. CEFTAZIDIME. [Suspect]
     Active Substance: CEFTAZIDIME
     Indication: ULCERATIVE KERATITIS
     Dosage: 50 MILLIGRAM PER MILLILITRE
     Route: 047
  4. VORICONAZOLE. [Suspect]
     Active Substance: VORICONAZOLE
     Indication: ULCERATIVE KERATITIS
     Dosage: 20 MILLIGRAM PER MILLILITRE, TID (8 TIMES/DAY)
     Route: 047
  5. CEFTAZIDIME. [Suspect]
     Active Substance: CEFTAZIDIME
     Indication: HYPOPYON
  6. MOXIFLOXACIN HYDROCHLORIDE. [Suspect]
     Active Substance: MOXIFLOXACIN HYDROCHLORIDE
     Indication: HYPOPYON

REACTIONS (3)
  - Drug ineffective for unapproved indication [Unknown]
  - Ulcerative keratitis [Recovering/Resolving]
  - Disease progression [Recovering/Resolving]
